FAERS Safety Report 26115331 (Version 1)
Quarter: 2025Q4

REPORT INFORMATION
  Report Type: Spontaneous
  Country: CN (occurrence: CN)
  Receive Date: 20251203
  Receipt Date: 20251203
  Transmission Date: 20260117
  Serious: Yes (Other)
  Sender: BOEHRINGER INGELHEIM
  Company Number: CN-BoehringerIngelheim-2025-BI-110843

PATIENT
  Age: 4 Year
  Sex: Female
  Weight: 15.000 kg

DRUGS (8)
  1. ATROVENT [Suspect]
     Active Substance: IPRATROPIUM BROMIDE
     Indication: Pneumonia mycoplasmal
     Dates: start: 20251107, end: 20251111
  2. ATROVENT [Suspect]
     Active Substance: IPRATROPIUM BROMIDE
     Indication: Rhinovirus infection
  3. ALBUTEROL SULFATE [Suspect]
     Active Substance: ALBUTEROL SULFATE
     Indication: Pneumonia mycoplasmal
     Dates: start: 20251107, end: 20251111
  4. ALBUTEROL SULFATE [Suspect]
     Active Substance: ALBUTEROL SULFATE
     Indication: Rhinovirus infection
  5. PULMICORT RESPULES [Suspect]
     Active Substance: BUDESONIDE
     Indication: Pneumonia mycoplasmal
     Dosage: DOSAGE FORM: SUSPENSION
     Dates: start: 20251107, end: 20251111
  6. PULMICORT RESPULES [Suspect]
     Active Substance: BUDESONIDE
     Indication: Rhinovirus infection
  7. PIPERACILLIN SODIUM\TAZOBACTAM SODIUM [Concomitant]
     Active Substance: PIPERACILLIN SODIUM\TAZOBACTAM SODIUM
     Indication: Pneumonia mycoplasmal
     Dates: start: 20251107, end: 20251111
  8. PIPERACILLIN SODIUM\TAZOBACTAM SODIUM [Concomitant]
     Active Substance: PIPERACILLIN SODIUM\TAZOBACTAM SODIUM
     Indication: Rhinovirus infection

REACTIONS (1)
  - Anaphylactoid reaction [Recovered/Resolved]

NARRATIVE: CASE EVENT DATE: 20251109
